FAERS Safety Report 5244949-9 (Version None)
Quarter: 2007Q1

REPORT INFORMATION
  Report Type: 
  Country: None (occurrence: None)
  Receive Date: 20070223
  Receipt Date: 20070215
  Transmission Date: 20070707
  Serious: Yes (Life-Threatening)
  Sender: FDA-Public Use
  Company Number: JP-JNJFOC-20070106477

PATIENT
  Sex: Female
  Weight: 43 kg

DRUGS (7)
  1. REMICADE [Suspect]
  2. REMICADE [Suspect]
     Indication: ACUTE LYMPHOCYTIC LEUKAEMIA
  3. MEDROL [Concomitant]
     Indication: OBLITERATIVE BRONCHIOLITIS
     Route: 048
  4. ZOVIRAX [Concomitant]
     Indication: INFECTION PROPHYLAXIS
     Route: 048
  5. THYRADIN [Concomitant]
     Indication: HYPOTHYROIDISM
     Route: 048
  6. BONALON [Concomitant]
     Indication: BONE DENSITY DECREASED
     Route: 048
  7. DIFLUCAN [Concomitant]
     Indication: ANTIFUNGAL PROPHYLAXIS
     Route: 048

REACTIONS (1)
  - BRONCHOPULMONARY ASPERGILLOSIS [None]
